FAERS Safety Report 22042321 (Version 1)
Quarter: 2023Q1

REPORT INFORMATION
  Report Type: Spontaneous
  Country: KR (occurrence: KR)
  Receive Date: 20230227
  Receipt Date: 20230227
  Transmission Date: 20230418
  Serious: Yes (Other)
  Sender: FDA-Public Use
  Company Number: KR-BAXTER-2023BAX013628

PATIENT
  Age: 80 Year
  Sex: Male

DRUGS (2)
  1. CALCIUM CL\DEXTROSE\LACTIC ACID\MAGNESIUM CL\POTASSIUM CL\SODIUM BICAR [Suspect]
     Active Substance: CALCIUM CL\DEXTROSE\LACTIC ACID\MAGNESIUM CL\POTASSIUM CL\SODIUM BICAR\SODIUM CL
     Dosage: UNK
     Route: 065
     Dates: start: 20230221, end: 20230221
  2. CALCIUM CL\MAGNESIUM CL\POTASSIUM CL\SODIUM BICAR\SODIUM CL\SODIUM PHO [Suspect]
     Active Substance: CALCIUM CL\MAGNESIUM CL\POTASSIUM CL\SODIUM BICAR\SODIUM CL\SODIUM PHOSPHATE,DIB
     Dosage: UNK
     Route: 065
     Dates: start: 20230221, end: 20230221

REACTIONS (2)
  - Haemorrhage [Unknown]
  - Device delivery system issue [Unknown]

NARRATIVE: CASE EVENT DATE: 20230221
